FAERS Safety Report 24542803 (Version 2)
Quarter: 2025Q1

REPORT INFORMATION
  Report Type: Spontaneous
  Country: US (occurrence: US)
  Receive Date: 20241024
  Receipt Date: 20250201
  Transmission Date: 20250408
  Serious: No
  Sender: GLENMARK
  Company Number: US-GLENMARK PHARMACEUTICALS-2024GMK094696

PATIENT

DRUGS (1)
  1. RYALTRIS [Suspect]
     Active Substance: MOMETASONE FUROATE MONOHYDRATE\OLOPATADINE HYDROCHLORIDE
     Indication: Rhinitis allergic
     Dosage: BID (INSTILL 2 SPRAYS INTO AFFECTED NOSTRIL(S) TWICE A DAY)
     Route: 045
     Dates: start: 20240912, end: 20241003

REACTIONS (2)
  - Dysgeusia [Unknown]
  - Product taste abnormal [Unknown]
